FAERS Safety Report 8572826-4 (Version None)
Quarter: 2012Q2

REPORT INFORMATION
  Report Type: 
  Country: None (occurrence: None)
  Receive Date: 20120423
  Receipt Date: 20101013
  Transmission Date: 20120825
  Serious: Yes (Other)
  Sender: FDA-Public Use
  Company Number: PHHY2010US59316

PATIENT
  Age: 58 Year
  Sex: Female

DRUGS (1)
  1. EXJADE [Suspect]
     Indication: APLASTIC ANAEMIA
     Dosage: 250 MG THREE TABLETS ; 750 MG QD, ORAL
     Route: 048
     Dates: start: 20071105, end: 20100825

REACTIONS (2)
  - DISEASE PROGRESSION [None]
  - NAUSEA [None]
